FAERS Safety Report 8491606-1 (Version None)
Quarter: 2012Q3

REPORT INFORMATION
  Report Type: 
  Country: None (occurrence: None)
  Receive Date: 20120706
  Receipt Date: 20120626
  Transmission Date: 20120928
  Serious: Yes (Hospitalization)
  Sender: FDA-Public Use
  Company Number: FR-FRI-1000036847

PATIENT
  Sex: Female

DRUGS (5)
  1. ESCITALOPRAM [Suspect]
     Dosage: 20 MG
     Route: 048
  2. VICTOZA [Suspect]
     Dosage: 3 ML
     Route: 058
     Dates: start: 20110401
  3. DIAMICRON [Suspect]
     Dosage: 60 MG
     Route: 048
  4. SIMVASTATIN [Suspect]
     Dosage: 20 MG
     Route: 048
  5. METFORMIN HCL [Suspect]
     Dosage: 2550 MG
     Route: 048

REACTIONS (2)
  - LOSS OF CONSCIOUSNESS [None]
  - WEIGHT DECREASED [None]
